FAERS Safety Report 20063687 (Version 2)
Quarter: 2021Q4

REPORT INFORMATION
  Report Type: Report from Study
  Country: US (occurrence: US)
  Receive Date: 20211112
  Receipt Date: 20211209
  Transmission Date: 20220303
  Serious: Yes (Death)
  Sender: FDA-Public Use
  Company Number: US-EXELIXIS-XL18421046028

PATIENT
  Age: 79 Year
  Sex: Male
  Weight: 74.3 kg

DRUGS (4)
  1. CABOZANTINIB [Suspect]
     Active Substance: CABOZANTINIB
     Indication: Thyroid neoplasm
     Dosage: 40 MG, QD
     Route: 048
     Dates: start: 20210819
  2. NIVOLUMAB [Suspect]
     Active Substance: NIVOLUMAB
     Indication: Thyroid neoplasm
     Dosage: 240 MG ON DAYS 1, 15, AND 29
     Route: 042
     Dates: start: 20210819
  3. NIVOLUMAB [Suspect]
     Active Substance: NIVOLUMAB
     Dosage: 480 MG
     Route: 042
     Dates: start: 20210902
  4. IPILIMUMAB [Suspect]
     Active Substance: IPILIMUMAB
     Indication: Thyroid neoplasm
     Dosage: 1 MG/KG, ON DAY 1 (75 MG ON DAY 1)
     Route: 042
     Dates: start: 20210819

REACTIONS (1)
  - Myocardial infarction [Fatal]

NARRATIVE: CASE EVENT DATE: 20211013
